FAERS Safety Report 16324894 (Version 1)
Quarter: 2019Q2

REPORT INFORMATION
  Report Type: Spontaneous
  Country: US (occurrence: US)
  Receive Date: 20190517
  Receipt Date: 20190517
  Transmission Date: 20190711
  Serious: No
  Sender: FDA-Public Use
  Company Number: US-TEVA-2019-US-1042893

PATIENT
  Age: 76 Year
  Sex: Female
  Weight: 71.4 kg

DRUGS (8)
  1. AUSTEDO [Suspect]
     Active Substance: DEUTETRABENAZINE
     Indication: TARDIVE DYSKINESIA
     Dosage: NEW TITRATING
     Route: 048
     Dates: start: 20180924, end: 20181015
  2. RIVAROXABAN 20 MG [Concomitant]
     Active Substance: RIVAROXABAN
     Route: 048
  3. ESCITALOPRAM (LEXAPRO) 10 MG [Concomitant]
     Dosage: 10 MILLIGRAM DAILY;
     Route: 048
  4. CETIRIZINE (ZYRTEC) 10 MG [Concomitant]
     Dosage: 10 MILLIGRAM DAILY;
     Route: 048
  5. TRAMADOL (ULTRAM) 50 MG [Concomitant]
     Indication: PAIN
     Dosage: AS NEEDED FOR NECK PAIN
     Route: 048
  6. AUSTEDO [Suspect]
     Active Substance: DEUTETRABENAZINE
     Dosage: 36 MILLIGRAM DAILY;
     Route: 048
  7. ACETAMINOPHEN (TYLENOL) 325 MG [Concomitant]
     Indication: PAIN
     Dosage: EVERY 4 HOURS AS NEEDED
     Route: 048
  8. AUSTEDO [Suspect]
     Active Substance: DEUTETRABENAZINE
     Dosage: 48 MILLIGRAM DAILY;
     Route: 048

REACTIONS (4)
  - Vomiting [Recovered/Resolved]
  - Dizziness [Recovered/Resolved]
  - Nausea [Recovered/Resolved]
  - Diarrhoea [Recovered/Resolved]

NARRATIVE: CASE EVENT DATE: 20181007
